FAERS Safety Report 8401397-8 (Version None)
Quarter: 2012Q2

REPORT INFORMATION
  Report Type: 
  Country: None (occurrence: None)
  Receive Date: 20120601
  Receipt Date: 20120522
  Transmission Date: 20120825
  Serious: Yes (Life-Threatening)
  Sender: FDA-Public Use
  Company Number: JP-VERTEX PHARMACEUTICALS INC.-AE-2012-007797

PATIENT
  Sex: Male

DRUGS (11)
  1. TELAVIC (TELAPREVIR) [Suspect]
     Route: 048
     Dates: start: 20120313, end: 20120417
  2. WYTENS [Concomitant]
     Route: 048
  3. RIBAVIRIN [Concomitant]
     Indication: HEPATITIS C
     Route: 048
     Dates: start: 20120124, end: 20120228
  4. TELAVIC (TELAPREVIR) [Suspect]
     Indication: HEPATITIS C
     Route: 048
     Dates: start: 20120124, end: 20120312
  5. NIZATIDINE [Concomitant]
     Route: 048
     Dates: start: 20120124
  6. DIOVAN [Concomitant]
     Route: 048
  7. RIBAVIRIN [Concomitant]
     Route: 048
     Dates: start: 20120229, end: 20120305
  8. RIBAVIRIN [Concomitant]
     Route: 048
     Dates: start: 20120306
  9. PEG-INTRON [Concomitant]
     Indication: HEPATITIS C
     Route: 051
     Dates: start: 20120124
  10. ADALAT CC [Concomitant]
     Route: 048
  11. LOXONIN [Concomitant]
     Route: 048
     Dates: start: 20120124

REACTIONS (2)
  - INTERSTITIAL LUNG DISEASE [None]
  - ARRHYTHMIA [None]
